FAERS Safety Report 4678299-6 (Version None)
Quarter: 2005Q2

REPORT INFORMATION
  Report Type: 
  Country: None (occurrence: None)
  Receive Date: 20050527
  Receipt Date: 20050517
  Transmission Date: 20051028
  Serious: Yes (Other)
  Sender: FDA-Public Use
  Company Number: 2005076893

PATIENT
  Age: 80 Year
  Sex: Male

DRUGS (5)
  1. LIPITOR [Suspect]
     Indication: ILL-DEFINED DISORDER
  2. ARICEPT [Suspect]
     Indication: ILL-DEFINED DISORDER
  3. OMEGA 3 (FISH OIL) [Suspect]
     Indication: ILL-DEFINED DISORDER
  4. GLUCOSAMINE W/CHONDROITIN SULFARTES (ASCORBIC ACID, CHONDROITIN  SULFA [Suspect]
     Indication: PAIN
  5. ACETAMINOPHEN [Suspect]
     Indication: PAIN
     Dosage: (500 MG)

REACTIONS (5)
  - AMNESIA [None]
  - KNEE OPERATION [None]
  - MUSCLE SPASMS [None]
  - NERVOUS SYSTEM DISORDER [None]
  - VASCULAR OCCLUSION [None]
